FAERS Safety Report 7927564-5 (Version None)
Quarter: 2011Q4

REPORT INFORMATION
  Report Type: 
  Country: None (occurrence: None)
  Receive Date: 20111118
  Receipt Date: 20111107
  Transmission Date: 20120403
  Serious: Yes (Other)
  Sender: FDA-Public Use
  Company Number: GR-PFIZER INC-2011279049

PATIENT
  Age: 50 Year
  Sex: Male

DRUGS (3)
  1. VANCOMYCIN [Suspect]
     Indication: CLOSTRIDIAL INFECTION
     Route: 048
  2. CEFEPIME [Suspect]
     Indication: CLOSTRIDIAL INFECTION
     Route: 048
  3. METRONIDAZOLE [Suspect]
     Indication: CLOSTRIDIAL INFECTION
     Route: 042

REACTIONS (2)
  - ORAL CANDIDIASIS [None]
  - OESOPHAGEAL CANDIDIASIS [None]
